FAERS Safety Report 15941117 (Version 2)
Quarter: 2019Q1

REPORT INFORMATION
  Report Type: Spontaneous
  Country: US (occurrence: US)
  Receive Date: 20190208
  Receipt Date: 20190215
  Transmission Date: 20190417
  Serious: Yes (Other)
  Sender: FDA-Public Use
  Company Number: US-ASTRAZENECA-2018SF26355

PATIENT
  Sex: Male

DRUGS (13)
  1. VIMOVO [Suspect]
     Active Substance: ESOMEPRAZOLE MAGNESIUM\NAPROXEN
     Route: 048
     Dates: start: 2010, end: 2012
  2. NORVASC [Concomitant]
     Active Substance: AMLODIPINE BESYLATE
  3. CALCITRIOL. [Concomitant]
     Active Substance: CALCITRIOL
  4. SILDENAFIL. [Concomitant]
     Active Substance: SILDENAFIL
  5. COLCHICINE. [Concomitant]
     Active Substance: COLCHICINE
  6. VALSARTAN. [Concomitant]
     Active Substance: VALSARTAN
  7. NEXIUM [Suspect]
     Active Substance: ESOMEPRAZOLE MAGNESIUM
     Route: 048
     Dates: start: 20101208
  8. ACIPHEX [Suspect]
     Active Substance: RABEPRAZOLE SODIUM
     Route: 065
     Dates: start: 2010, end: 2012
  9. ULORIC [Concomitant]
     Active Substance: FEBUXOSTAT
  10. NEXIUM [Suspect]
     Active Substance: ESOMEPRAZOLE MAGNESIUM
     Route: 048
     Dates: start: 2010, end: 2012
  11. NEXIUM [Suspect]
     Active Substance: ESOMEPRAZOLE MAGNESIUM
     Route: 048
     Dates: start: 20110920
  12. METOPROLOL. [Concomitant]
     Active Substance: METOPROLOL
  13. CLONIDINE. [Concomitant]
     Active Substance: CLONIDINE

REACTIONS (3)
  - Chronic kidney disease [Unknown]
  - End stage renal disease [Unknown]
  - Renal failure [Unknown]
